FAERS Safety Report 4705578-6 (Version None)
Quarter: 2005Q2

REPORT INFORMATION
  Report Type: 
  Country: None (occurrence: None)
  Receive Date: 20050629
  Receipt Date: 20040820
  Transmission Date: 20051028
  Serious: Yes (Life-Threatening, Hospitalization)
  Sender: FDA-Public Use
  Company Number: 200412352EU

PATIENT
  Age: 57 Year
  Sex: Male

DRUGS (5)
  1. CISPLATIN [Suspect]
     Indication: NEOPLASM MALIGNANT
     Dosage: 160 MG/DAY IV
     Route: 042
     Dates: start: 20040617
  2. FLUOROURACIL [Suspect]
     Indication: NEOPLASM MALIGNANT
     Dosage: 1600 MG/DAY IV
     Route: 042
     Dates: start: 20040617
  3. DOXAZOSIN [Concomitant]
  4. METAMIZOL [Concomitant]
  5. AMLODIPINE [Concomitant]

REACTIONS (10)
  - BACTERAEMIA [None]
  - DIARRHOEA [None]
  - DYSPHAGIA [None]
  - DYSPNOEA [None]
  - MUCOSAL INFLAMMATION [None]
  - PAIN [None]
  - PULMONARY OEDEMA [None]
  - PYREXIA [None]
  - THROMBOPHLEBITIS [None]
  - WEIGHT DECREASED [None]
